FAERS Safety Report 13782880 (Version 1)
Quarter: 2017Q3

REPORT INFORMATION
  Report Type: Spontaneous
  Country: US (occurrence: US)
  Receive Date: 20170724
  Receipt Date: 20170724
  Transmission Date: 20171127
  Serious: No
  Sender: FDA-Public Use
  Company Number: US-PFIZER INC-2017319157

PATIENT
  Age: 63 Year
  Sex: Female

DRUGS (1)
  1. NORPACE [Suspect]
     Active Substance: DISOPYRAMIDE PHOSPHATE
     Indication: HYPERTROPHIC CARDIOMYOPATHY
     Dosage: UNK UNK, 4X/DAY

REACTIONS (3)
  - Drug dose omission [Unknown]
  - Product use in unapproved indication [Unknown]
  - Therapeutic response shortened [Unknown]
